FAERS Safety Report 7217291-4 (Version None)
Quarter: 2011Q1

REPORT INFORMATION
  Report Type: 
  Country: None (occurrence: None)
  Receive Date: 20110110
  Receipt Date: 20101231
  Transmission Date: 20110831
  Serious: Yes (Hospitalization)
  Sender: FDA-Public Use
  Company Number: FR-SANOFI-AVENTIS-2010SA078704

PATIENT
  Age: 72 Year
  Sex: Female

DRUGS (4)
  1. LASIX [Suspect]
     Route: 048
  2. ROSUVASTATIN [Suspect]
     Dates: end: 20100427
  3. PREVISCAN [Suspect]
     Indication: AORTIC VALVE REPLACEMENT
     Route: 048
     Dates: start: 20000101, end: 20100427
  4. HYPERIUM [Suspect]

REACTIONS (2)
  - INTRA-ABDOMINAL HAEMATOMA [None]
  - HAEMATEMESIS [None]
